FAERS Safety Report 16407487 (Version 16)
Quarter: 2022Q1

REPORT INFORMATION
  Report Type: Report from Study
  Country: CA (occurrence: CA)
  Receive Date: 20190608
  Receipt Date: 20220210
  Transmission Date: 20220423
  Serious: Yes (Hospitalization, Other)
  Sender: FDA-Public Use
  Company Number: PHHY2017CA072009

PATIENT
  Age: 67 Year
  Sex: Female

DRUGS (10)
  1. SANDOSTATIN LAR DEPOT [Suspect]
     Active Substance: OCTREOTIDE ACETATE
     Indication: Carcinoid tumour
     Dosage: 20 MG, QMO (EVERY4 WEEKS)
     Route: 030
     Dates: start: 20170412
  2. SANDOSTATIN LAR DEPOT [Suspect]
     Active Substance: OCTREOTIDE ACETATE
     Indication: Neuroendocrine tumour
  3. SANDOSTATIN LAR DEPOT [Suspect]
     Active Substance: OCTREOTIDE ACETATE
  4. SANDOSTATIN [Suspect]
     Active Substance: OCTREOTIDE ACETATE
     Indication: Carcinoid tumour
     Dosage: 50 UG,  TID (FOR 2 WEEKS)
     Route: 058
     Dates: start: 20170327, end: 20170411
  5. SANDOSTATIN [Suspect]
     Active Substance: OCTREOTIDE ACETATE
     Indication: Neuroendocrine tumour
     Dosage: UNK, TID (FOR 2 WEEKS)
     Route: 058
     Dates: start: 2017, end: 2017
  6. SANDOSTATIN [Suspect]
     Active Substance: OCTREOTIDE ACETATE
  7. SPIRONOLACTONE [Concomitant]
     Active Substance: SPIRONOLACTONE
     Indication: Product used for unknown indication
     Dosage: 25 MG, QD, (1/2 TABLET DAILY)
     Route: 048
  8. TRAZODONE [Concomitant]
     Active Substance: TRAZODONE HYDROCHLORIDE
     Indication: Product used for unknown indication
     Dosage: UNK
     Route: 065
  9. FUROSEMIDE [Concomitant]
     Active Substance: FUROSEMIDE
     Indication: Product used for unknown indication
     Dosage: UNK
     Route: 048
  10. CORTISONE [Concomitant]
     Active Substance: CORTISONE
     Indication: Product used for unknown indication
     Dosage: IN THE BACK
     Route: 065
     Dates: start: 20210924

REACTIONS (26)
  - Pneumonia [Unknown]
  - Kidney infection [Unknown]
  - Hip fracture [Unknown]
  - Myocardial infarction [Unknown]
  - Cardiac discomfort [Unknown]
  - Immunodeficiency [Unknown]
  - Sialoadenitis [Unknown]
  - Salivary gland pain [Unknown]
  - Rib fracture [Unknown]
  - Back pain [Unknown]
  - Depressed mood [Unknown]
  - Fungal infection [Unknown]
  - Hyperhidrosis [Unknown]
  - Hot flush [Unknown]
  - Pain [Unknown]
  - Blood pressure increased [Unknown]
  - Chest pain [Unknown]
  - Electric shock sensation [Unknown]
  - Musculoskeletal chest pain [Not Recovered/Not Resolved]
  - Biliary colic [Recovered/Resolved]
  - Heart rate increased [Unknown]
  - Gait disturbance [Unknown]
  - Dyspnoea [Unknown]
  - Pain in extremity [Unknown]
  - Anaemia [Unknown]
  - Fatigue [Unknown]

NARRATIVE: CASE EVENT DATE: 20170501
